FAERS Safety Report 9542491 (Version 2)
Quarter: 2013Q4

REPORT INFORMATION
  Report Type: Report from Study
  Country: BR (occurrence: BR)
  Receive Date: 20130923
  Receipt Date: 20131022
  Transmission Date: 20140711
  Serious: Yes (Other)
  Sender: FDA-Public Use
  Company Number: PHHY2013BR105505

PATIENT
  Sex: Female
  Weight: 59 kg

DRUGS (4)
  1. ACLASTA [Suspect]
     Indication: OSTEOPOROSIS
     Dosage: 5 MG/100 ML, UNK
     Route: 042
     Dates: start: 2008
  2. PREDNISONE [Concomitant]
     Dosage: UNK UKN, UNK
     Dates: start: 1990
  3. METHOTREXATE [Concomitant]
     Dosage: UNK UKN, UNK
     Dates: start: 1990
  4. CALCIUM CARBONATE AND VITAMIN D [Concomitant]
     Dosage: UNK UKN, UNK
     Dates: start: 2008

REACTIONS (4)
  - Upper limb fracture [Recovering/Resolving]
  - Fall [Recovering/Resolving]
  - Lower limb fracture [Recovering/Resolving]
  - Hip fracture [Recovering/Resolving]
